FAERS Safety Report 14215822 (Version 1)
Quarter: 2017Q4

REPORT INFORMATION
  Report Type: Not Available
  Country: US (occurrence: US)
  Receive Date: 20171122
  Receipt Date: 20171122
  Transmission Date: 20180321
  Serious: No
  Sender: FDA-Public Use
  Company Number: US-MIDATECHPHARMA-2016-US-009941

PATIENT
  Age: 41 Year
  Sex: Female
  Weight: 106.6 kg

DRUGS (1)
  1. ORAVIG [Suspect]
     Active Substance: MICONAZOLE
     Dosage: 1 TABLET ONCE
     Route: 048

REACTIONS (1)
  - Product use complaint [Unknown]
